FAERS Safety Report 6984675-9 (Version None)
Quarter: 2010Q3

REPORT INFORMATION
  Report Type: 
  Country: None (occurrence: None)
  Receive Date: 20100915
  Receipt Date: 20100907
  Transmission Date: 20110219
  Serious: Yes (Hospitalization)
  Sender: FDA-Public Use
  Company Number: US-AMGEN-KDL436686

PATIENT
  Sex: Female

DRUGS (2)
  1. ENBREL [Suspect]
     Indication: RHEUMATOID ARTHRITIS
     Route: 058
     Dates: start: 20050609
  2. COUMADIN [Concomitant]

REACTIONS (8)
  - DIARRHOEA [None]
  - HEADACHE [None]
  - HEART RATE INCREASED [None]
  - INCREASED TENDENCY TO BRUISE [None]
  - INFLUENZA [None]
  - INJECTION SITE HAEMATOMA [None]
  - INJECTION SITE SWELLING [None]
  - NAUSEA [None]
